FAERS Safety Report 23565633 (Version 1)
Quarter: 2024Q1

REPORT INFORMATION
  Report Type: Spontaneous
  Country: US (occurrence: US)
  Receive Date: 20240226
  Receipt Date: 20240226
  Transmission Date: 20240409
  Serious: Yes (Other)
  Sender: FDA-Public Use
  Company Number: US-MIRATI-MT2024PM05833

PATIENT
  Age: 71 Year
  Sex: Male

DRUGS (21)
  1. KEYTRUDA [Suspect]
     Active Substance: PEMBROLIZUMAB
     Indication: Non-small cell lung cancer
     Dosage: UNK
  2. KRAZATI [Suspect]
     Active Substance: ADAGRASIB
     Indication: Lung neoplasm malignant
     Dosage: 600 MILLIGRAM, BID
     Route: 048
     Dates: start: 20240119, end: 20240202
  3. KRAZATI [Suspect]
     Active Substance: ADAGRASIB
     Indication: Non-small cell lung cancer
  4. LANTUS [Concomitant]
     Active Substance: INSULIN GLARGINE
     Dosage: UNK
  5. METFORMIN [Concomitant]
     Active Substance: METFORMIN HYDROCHLORIDE
  6. ACTOS [Concomitant]
     Active Substance: PIOGLITAZONE HYDROCHLORIDE
     Dosage: UNK
  7. PIOGLITAZONE [Concomitant]
     Active Substance: PIOGLITAZONE
     Dosage: UNK
  8. LOVASTATIN [Concomitant]
     Active Substance: LOVASTATIN
     Dosage: UNK
  9. CLOPIDOGREL [Concomitant]
     Active Substance: CLOPIDOGREL BISULFATE
     Dosage: UNK
  10. DIETARY SUPPLEMENT [Concomitant]
     Active Substance: DIETARY SUPPLEMENT
     Dosage: UNK
  11. FOLIC ACID [Concomitant]
     Active Substance: FOLIC ACID
     Dosage: UNK
  12. HYDROCHLOROTHIAZIDE [Concomitant]
     Active Substance: HYDROCHLOROTHIAZIDE
     Dosage: UNK
  13. ATORVASTATIN [Concomitant]
     Active Substance: ATORVASTATIN
     Dosage: UNK
  14. COENZYME Q10 [Concomitant]
     Active Substance: DIETARY SUPPLEMENT\UBIDECARENONE
     Dosage: UNK
  15. SUPER IRON [Concomitant]
     Dosage: UNK
  16. MAGNESIUM [Concomitant]
     Active Substance: MAGNESIUM
     Dosage: UNK
  17. FAMOTIDINE [Concomitant]
     Active Substance: FAMOTIDINE
     Dosage: UNK
  18. GOLD BOND ORIGINAL STRENGTH POWDER [Concomitant]
     Active Substance: MENTHOL\ZINC OXIDE
  19. HUMALOG [Concomitant]
     Active Substance: INSULIN LISPRO
     Dosage: UNK
  20. TRULICITY [Concomitant]
     Active Substance: DULAGLUTIDE
     Dosage: UNK
  21. METOPROLOL [Concomitant]
     Active Substance: METOPROLOL
     Dosage: UNK

REACTIONS (17)
  - Renal impairment [Unknown]
  - Extrasystoles [Not Recovered/Not Resolved]
  - Flatulence [Recovering/Resolving]
  - Blood glucose increased [Not Recovered/Not Resolved]
  - Night sweats [Not Recovered/Not Resolved]
  - Pruritus [Not Recovered/Not Resolved]
  - Palmar erythema [Recovering/Resolving]
  - Arthralgia [Not Recovered/Not Resolved]
  - Hypoaesthesia [Unknown]
  - Joint swelling [Unknown]
  - Gout [Recovering/Resolving]
  - Hypoaesthesia [Not Recovered/Not Resolved]
  - Peripheral swelling [Recovered/Resolved]
  - Pain in extremity [Not Recovered/Not Resolved]
  - Peripheral swelling [Not Recovered/Not Resolved]
  - Peripheral swelling [Unknown]
  - Dehydration [Not Recovered/Not Resolved]

NARRATIVE: CASE EVENT DATE: 20240101
